FAERS Safety Report 12172003 (Version 2)
Quarter: 2016Q1

REPORT INFORMATION
  Report Type: Spontaneous
  Country: JP (occurrence: JP)
  Receive Date: 20160311
  Receipt Date: 20160328
  Transmission Date: 20160526
  Serious: Yes (Hospitalization, Other)
  Sender: FDA-Public Use
  Company Number: JP-GLAXOSMITHKLINE-JP2016JPN032647

PATIENT
  Age: 23 Year
  Sex: Male

DRUGS (5)
  1. AMPICILLIN SODIUM + SULBACTAM SODIUM [Concomitant]
     Dosage: UNK
  2. VANCOMYCIN HYDROCHLORIDE. [Concomitant]
     Active Substance: VANCOMYCIN HYDROCHLORIDE
     Dosage: UNK
  3. CEFTRIAXONE SODIUM HYDRATE [Concomitant]
     Active Substance: CEFTRIAXONE SODIUM
     Dosage: UNK
  4. ACICLOVIR [Suspect]
     Active Substance: ACYCLOVIR
     Route: 048
  5. MEROPENEM HYDRATE [Concomitant]
     Active Substance: MEROPENEM
     Dosage: UNK

REACTIONS (5)
  - Disseminated intravascular coagulation [Unknown]
  - Rhabdomyolysis [Unknown]
  - Computerised tomogram abnormal [Unknown]
  - Cerebellar infarction [Unknown]
  - Disorientation [Unknown]
